FAERS Safety Report 9395763 (Version 2)
Quarter: 2015Q2

REPORT INFORMATION
  Report Type: Spontaneous
  Country: DK (occurrence: DK)
  Receive Date: 20130711
  Receipt Date: 20150403
  Transmission Date: 20150821
  Serious: Yes (Other)
  Sender: FDA-Public Use
  Company Number: DK-PFIZER INC-2013199568

PATIENT
  Age: 46 Year
  Sex: Female

DRUGS (4)
  1. IRINOTECAN HOSPIRA [Suspect]
     Active Substance: IRINOTECAN
     Indication: RECTAL CANCER
     Dosage: 180 MG/M2, CYCLIC
     Dates: start: 20100419, end: 201005
  2. FLUOROURACIL. [Concomitant]
     Active Substance: FLUOROURACIL
     Indication: RECTAL CANCER
     Dates: start: 20100419, end: 201005
  3. METHOTREXATE [Concomitant]
     Active Substance: METHOTREXATE
     Indication: RHEUMATOID ARTHRITIS
  4. CALCIUMFOLINAT [Concomitant]
     Active Substance: LEUCOVORIN CALCIUM
     Indication: RECTAL CANCER
     Dates: start: 20100419, end: 201005

REACTIONS (6)
  - Peripheral swelling [Unknown]
  - Walking disability [Unknown]
  - Neuralgia [Unknown]
  - Skin discolouration [Unknown]
  - Peripheral artery thrombosis [Unknown]
  - Ischaemic neuropathy [Unknown]

NARRATIVE: CASE EVENT DATE: 2010
